FAERS Safety Report 23526918 (Version 1)
Quarter: 2024Q1

REPORT INFORMATION
  Report Type: Spontaneous
  Country: US (occurrence: US)
  Receive Date: 20240215
  Receipt Date: 20240215
  Transmission Date: 20240410
  Serious: Yes (Other)
  Sender: FDA-Public Use
  Company Number: US-OPELLA-2024OHG004300

PATIENT
  Age: 79 Year
  Sex: Male

DRUGS (1)
  1. TALC [Suspect]
     Active Substance: TALC
     Route: 065

REACTIONS (1)
  - Pleural mesothelioma malignant [Unknown]
